FAERS Safety Report 9530045 (Version 2)
Quarter: 2014Q1

REPORT INFORMATION
  Report Type: Spontaneous
  Country: DK (occurrence: CA)
  Receive Date: 20130917
  Receipt Date: 20140124
  Transmission Date: 20141002
  Serious: Yes (Other)
  Sender: FDA-Public Use
  Company Number: CA-FRI-1000048801

PATIENT
  Sex: Female
  Weight: 45 kg

DRUGS (7)
  1. ESCITALOPRAM [Suspect]
     Indication: ANXIETY
     Dosage: 10 MG
  2. IMODIUM [Suspect]
  3. REMICADE [Suspect]
     Indication: CROHN^S DISEASE
     Dosage: 5.3571 MG
     Route: 042
     Dates: start: 201109
  4. TECTA [Suspect]
     Indication: GASTROOESOPHAGEAL REFLUX DISEASE
     Dosage: 30 MG
  5. TYLENOL WITH CODEINE NO.3 [Suspect]
     Indication: PAIN
  6. VENTOLIN [Suspect]
  7. MULTIVITAMIN [Concomitant]

REACTIONS (7)
  - Abortion spontaneous [Unknown]
  - Lung infection [Recovering/Resolving]
  - Rheumatoid factor increased [Unknown]
  - Blood iron decreased [Unknown]
  - Arthralgia [Not Recovered/Not Resolved]
  - Melanocytic naevus [Not Recovered/Not Resolved]
  - Pregnancy [Unknown]
